FAERS Safety Report 24145550 (Version 1)
Quarter: 2024Q3

REPORT INFORMATION
  Report Type: Spontaneous
  Country: FR (occurrence: FR)
  Receive Date: 20240729
  Receipt Date: 20240729
  Transmission Date: 20241017
  Serious: Yes (Life-Threatening, Hospitalization)
  Sender: CHEPLAPHARM
  Company Number: None

PATIENT
  Age: 37 Year
  Sex: Male

DRUGS (12)
  1. QUETIAPINE [Suspect]
     Active Substance: QUETIAPINE
     Indication: Depression
  2. CLONAZEPAM [Suspect]
     Active Substance: CLONAZEPAM
     Dosage: 1MG ALLOWING A V2 VERBAL RESPONSE
  3. COCAINE [Suspect]
     Active Substance: COCAINE
  4. ALCOHOL [Suspect]
     Active Substance: ALCOHOL
     Route: 048
  5. DEXTROMETHORPHAN [Suspect]
     Active Substance: DEXTROMETHORPHAN
  6. METHADONE [Suspect]
     Active Substance: METHADONE HYDROCHLORIDE
  7. BUPRENORPHINE [Suspect]
     Active Substance: BUPRENORPHINE
  8. NALOXONE [Concomitant]
     Active Substance: NALOXONE
  9. FLUMAZENIL [Concomitant]
     Active Substance: FLUMAZENIL
     Dosage: 1/2 AMPOULE
  10. TRAMADOL [Concomitant]
     Active Substance: TRAMADOL\TRAMADOL HYDROCHLORIDE
  11. CANNABIS SATIVA SUBSP. INDICA TOP [Concomitant]
     Active Substance: CANNABIS SATIVA SUBSP. INDICA TOP
  12. MIDOMAFETAMINE [Concomitant]
     Active Substance: MIDOMAFETAMINE

REACTIONS (7)
  - Bradypnoea [Recovered/Resolved]
  - Agitation [Recovered/Resolved]
  - Coma [Recovered/Resolved]
  - Toxicity to various agents [Recovered/Resolved]
  - Tachycardia [Recovered/Resolved]
  - Miosis [Recovered/Resolved]
  - Drug abuse [Not Recovered/Not Resolved]

NARRATIVE: CASE EVENT DATE: 20230828
